FAERS Safety Report 14959540 (Version 1)
Quarter: 2018Q2

REPORT INFORMATION
  Report Type: Spontaneous
  Country: US (occurrence: US)
  Receive Date: 20180531
  Receipt Date: 20180531
  Transmission Date: 20180711
  Serious: No
  Sender: FDA-Public Use
  Company Number: US-PERRIGO-17US024837

PATIENT
  Sex: Male

DRUGS (3)
  1. MINOXIDIL. [Suspect]
     Active Substance: MINOXIDIL
     Indication: PRODUCT USED FOR UNKNOWN INDICATION
     Dosage: 1 APPLICATION, 1 TO 2 TIMES DAILY
     Route: 061
  2. MINOXIDIL. [Suspect]
     Active Substance: MINOXIDIL
     Dosage: 1 APPLICATION, 1 TO 2 TIMES DAILY
     Route: 061
  3. MINOXIDIL. [Suspect]
     Active Substance: MINOXIDIL
     Dosage: 1 APPLICATION, 1 TO 2 TIMES DAILY
     Route: 061

REACTIONS (1)
  - Inappropriate schedule of drug administration [Not Recovered/Not Resolved]
